FAERS Safety Report 7525267-2 (Version None)
Quarter: 2011Q2

REPORT INFORMATION
  Report Type: 
  Country: None (occurrence: None)
  Receive Date: 20110606
  Receipt Date: 20110525
  Transmission Date: 20111010
  Serious: Yes (Death)
  Sender: FDA-Public Use
  Company Number: US-CELGENEUS-163-21880-11052642

PATIENT
  Sex: Male
  Weight: 78 kg

DRUGS (11)
  1. VICODIN [Concomitant]
     Indication: PAIN
     Route: 065
  2. TRENDA [Concomitant]
     Indication: MULTIPLE MYELOMA
     Dosage: 50 MILLIGRAM/SQ. METER
     Route: 065
  3. REVLIMID [Suspect]
     Indication: MULTIPLE MYELOMA
     Dosage: 15 MILLIGRAM
     Route: 048
     Dates: start: 20100805, end: 20110207
  4. LOVASTATIN [Concomitant]
     Route: 065
  5. DEXAMETHASONE [Concomitant]
     Indication: CHEMOTHERAPY
     Dosage: 40 MILLIGRAM
     Route: 065
  6. SIROLIMUS [Concomitant]
     Indication: PROPHYLAXIS
     Route: 065
  7. AREDIA [Concomitant]
     Route: 065
  8. BENDAMUSTINE [Concomitant]
     Indication: CHEMOTHERAPY
     Dosage: 15 MILLIGRAM/SQ. METER
     Route: 065
  9. BORTEZOMIB [Concomitant]
     Indication: PROPHYLAXIS
     Route: 065
  10. AMIODARONE HCL [Concomitant]
     Indication: ATRIAL FIBRILLATION
     Route: 041
  11. TACROLIMUS [Concomitant]
     Indication: PROPHYLAXIS
     Route: 065

REACTIONS (1)
  - VENOOCCLUSIVE DISEASE [None]
